FAERS Safety Report 21890557 (Version 1)
Quarter: 2023Q1

REPORT INFORMATION
  Report Type: Spontaneous
  Country: US (occurrence: US)
  Receive Date: 20230120
  Receipt Date: 20230120
  Transmission Date: 20230418
  Serious: No
  Sender: FDA-Public Use
  Company Number: US-STRIDES ARCOLAB LIMITED-2022SP002876

PATIENT
  Age: 47 Year
  Sex: Female

DRUGS (2)
  1. METHOTREXATE [Suspect]
     Active Substance: METHOTREXATE
     Indication: Rash papulosquamous
     Dosage: UNK (MAXIMUM WEEKLY DOSE OF 12.5MG)
     Route: 048
  2. CLOBETASOL [Concomitant]
     Active Substance: CLOBETASOL
     Indication: Pityriasis lichenoides et varioliformis acuta
     Dosage: UNK
     Route: 065

REACTIONS (1)
  - Nausea [Unknown]
